FAERS Safety Report 7321431-6 (Version None)
Quarter: 2011Q1

REPORT INFORMATION
  Report Type: 
  Country: None (occurrence: None)
  Receive Date: 20110228
  Receipt Date: 20100528
  Transmission Date: 20110831
  Serious: Yes (Other)
  Sender: FDA-Public Use
  Company Number: US-PFIZER INC-2010046093

PATIENT
  Sex: Male
  Weight: 68.027 kg

DRUGS (2)
  1. GEODON [Suspect]
     Indication: PARANOIA
     Dosage: 40 MG, 1X/DAY
     Route: 048
     Dates: start: 20080101
  2. PAXIL CR [Concomitant]
     Indication: ANXIETY DISORDER
     Dosage: 25 MG, 1X/DAY
     Route: 048
     Dates: start: 20020101

REACTIONS (6)
  - DRUG WITHDRAWAL SYNDROME [None]
  - HEADACHE [None]
  - RESTLESSNESS [None]
  - PARANOIA [None]
  - DRUG INEFFECTIVE [None]
  - INSOMNIA [None]
